FAERS Safety Report 8999584 (Version 1)
Quarter: 2013Q1

REPORT INFORMATION
  Report Type: Spontaneous
  Country: US (occurrence: US)
  Receive Date: 20130102
  Receipt Date: 20130102
  Transmission Date: 20140127
  Serious: No
  Sender: FDA-Public Use
  Company Number: US-AMGEN-USASP2012081613

PATIENT
  Sex: Male

DRUGS (1)
  1. ENBREL [Suspect]
     Indication: RHEUMATOID ARTHRITIS
     Dosage: 25 MG, TWICE WEEKLY
     Dates: start: 20070101

REACTIONS (3)
  - Discomfort [Not Recovered/Not Resolved]
  - Device difficult to use [Not Recovered/Not Resolved]
  - Injection site discomfort [Not Recovered/Not Resolved]
